FAERS Safety Report 10183730 (Version 1)
Quarter: 2014Q2

REPORT INFORMATION
  Report Type: Spontaneous
  Country: HR (occurrence: HR)
  Receive Date: 20140520
  Receipt Date: 20140520
  Transmission Date: 20141212
  Serious: Yes (Hospitalization, Other)
  Sender: FDA-Public Use
  Company Number: HR-PFIZER INC-2014137070

PATIENT
  Age: 40 Year
  Sex: Male
  Weight: 80 kg

DRUGS (10)
  1. MEDROL [Suspect]
     Indication: FOCAL SEGMENTAL GLOMERULOSCLEROSIS
     Dosage: 84MG TO 4MG
     Route: 048
     Dates: start: 20080421
  2. MEDROL [Suspect]
     Dosage: 84MG TO 4MG
     Route: 048
     Dates: start: 2008
  3. MEDROL [Suspect]
     Dosage: 32MG TO 8 MG
     Route: 048
     Dates: start: 200901
  4. MEDROL [Suspect]
     Dosage: 32MG TO 8 MG
     Route: 048
     Dates: start: 201002
  5. MEDROL [Suspect]
     Dosage: 64MG
     Route: 048
     Dates: start: 2010
  6. NOLPAZA [Concomitant]
     Dosage: 40 MG, UNK
     Route: 048
  7. ALOPURINOL ^BELUPO^ [Concomitant]
     Dosage: 100 MG, UNK
     Route: 048
  8. CRESTOR [Concomitant]
     Dosage: 10 MG, UNK
     Route: 048
  9. GOPTEN ^ABBOTT^ [Concomitant]
     Dosage: 0.5 MG, UNK
     Route: 048
  10. FORTEO COLTER [Concomitant]
     Dosage: 1 DF, 1X/DAY
     Route: 065

REACTIONS (5)
  - Compression fracture [Recovering/Resolving]
  - Osteopenia [Recovering/Resolving]
  - Glaucoma [Recovered/Resolved]
  - Cataract [Recovering/Resolving]
  - Skin striae [Recovering/Resolving]
